FAERS Safety Report 14019228 (Version 1)
Quarter: 2017Q3

REPORT INFORMATION
  Report Type: Spontaneous
  Country: US (occurrence: US)
  Receive Date: 20170928
  Receipt Date: 20170928
  Transmission Date: 20171128
  Serious: No
  Sender: FDA-Public Use
  Company Number: US-BION-005022

PATIENT
  Age: 91 Year
  Sex: Male
  Weight: 76.2 kg

DRUGS (2)
  1. LOPERAMIDE HYDROCHLORIDE. [Suspect]
     Active Substance: LOPERAMIDE HYDROCHLORIDE
     Indication: DIARRHOEA
     Dosage: TOOK 2 CAPLETS WITH FIRST DOSE ON 10/22, THEN 1 CAPLET ON 3RD AND 4TH DOSE OF THAT DAY. TOOK 1 CAPLE
     Route: 048
     Dates: start: 20161022, end: 20161023
  2. OMEPRAZOLE. [Concomitant]
     Active Substance: OMEPRAZOLE

REACTIONS (1)
  - Drug effect delayed [Unknown]
